FAERS Safety Report 14617465 (Version 1)
Quarter: 2018Q1

REPORT INFORMATION
  Report Type: Spontaneous
  Country: US (occurrence: US)
  Receive Date: 20180308
  Receipt Date: 20180308
  Transmission Date: 20180509
  Serious: Yes (Hospitalization)
  Sender: FDA-Public Use
  Company Number: None

PATIENT
  Age: 53 Year
  Sex: Female

DRUGS (3)
  1. IBRANCE [Suspect]
     Active Substance: PALBOCICLIB
     Indication: NEOPLASM MALIGNANT
     Dosage: DAILY X 21 DS
     Route: 048
     Dates: start: 20180209
  2. METRONIDAZOL [Concomitant]
     Active Substance: METRONIDAZOLE
  3. LETROZOLE. [Concomitant]
     Active Substance: LETROZOLE

REACTIONS (2)
  - Limb injury [None]
  - Drug dose omission [None]

NARRATIVE: CASE EVENT DATE: 201802
